FAERS Safety Report 23432480 (Version 2)
Quarter: 2024Q1

REPORT INFORMATION
  Report Type: Spontaneous
  Country: US (occurrence: US)
  Receive Date: 20240123
  Receipt Date: 20240207
  Transmission Date: 20240410
  Serious: Yes (Hospitalization, Other)
  Sender: FDA-Public Use
  Company Number: US-GLAXOSMITHKLINE-US2024006971

PATIENT

DRUGS (3)
  1. TRELEGY ELLIPTA [Suspect]
     Active Substance: FLUTICASONE FUROATE\UMECLIDINIUM BROMIDE\VILANTEROL TRIFENATATE
     Indication: Lung disorder
     Dosage: 1 DF, QD, 200-62.5MCG USE 1 INHALATION BY MOUTH DAILY
     Route: 055
  2. ALLOPURINOL [Suspect]
     Active Substance: ALLOPURINOL
     Indication: Gout
     Dosage: 300 MG, QD
  3. LYRICA [Concomitant]
     Active Substance: PREGABALIN
     Indication: Nerve injury
     Dosage: 75 MG

REACTIONS (9)
  - Hernia repair [Recovering/Resolving]
  - Thoracic operation [Unknown]
  - Diabetes mellitus [Unknown]
  - Colitis ulcerative [Unknown]
  - Mastectomy [Unknown]
  - Thyroid disorder [Unknown]
  - Blood pressure abnormal [Unknown]
  - Inflammation [Unknown]
  - Product use in unapproved indication [Unknown]

NARRATIVE: CASE EVENT DATE: 20160101
